FAERS Safety Report 24681888 (Version 1)
Quarter: 2024Q4

REPORT INFORMATION
  Report Type: Spontaneous
  Country: CN (occurrence: CN)
  Receive Date: 20241130
  Receipt Date: 20241130
  Transmission Date: 20250114
  Serious: Yes (Hospitalization)
  Sender: ROCHE
  Company Number: CN-ROCHE-10000142824

PATIENT
  Age: 71 Year
  Sex: Female
  Weight: 62.8 kg

DRUGS (6)
  1. TRASTUZUMAB [Suspect]
     Active Substance: TRASTUZUMAB
     Indication: Endometrial cancer
     Route: 042
     Dates: start: 20241108, end: 20241108
  2. TRASTUZUMAB [Suspect]
     Active Substance: TRASTUZUMAB
     Route: 042
  3. CARBOPLATIN [Suspect]
     Active Substance: CARBOPLATIN
     Indication: Endometrial cancer
     Route: 042
     Dates: start: 20241108, end: 20241108
  4. DOCETAXEL [Suspect]
     Active Substance: DOCETAXEL
     Indication: Endometrial cancer
     Route: 042
     Dates: start: 20241108, end: 20241108
  5. SODIUM CHLORIDE [Concomitant]
     Active Substance: SODIUM CHLORIDE
     Indication: Endometrial cancer
     Route: 042
     Dates: start: 20241108, end: 20241108
  6. SODIUM CHLORIDE [Concomitant]
     Active Substance: SODIUM CHLORIDE
     Route: 042
     Dates: start: 20241108, end: 20241108

REACTIONS (3)
  - White blood cell count decreased [Unknown]
  - Off label use [Unknown]
  - Full blood count decreased [Unknown]

NARRATIVE: CASE EVENT DATE: 20241111
